FAERS Safety Report 10033277 (Version 1)
Quarter: 2014Q1

REPORT INFORMATION
  Report Type: Spontaneous
  Country: GB (occurrence: GB)
  Receive Date: 20140324
  Receipt Date: 20140324
  Transmission Date: 20141002
  Serious: Yes (Life-Threatening, Hospitalization)
  Sender: FDA-Public Use
  Company Number: GB-MYLANLABS-2014S1005657

PATIENT
  Age: 5 Decade
  Sex: Female
  Weight: 80 kg

DRUGS (2)
  1. VENLAFAXINE [Suspect]
     Indication: DEPRESSION
     Dosage: 6.3G OVERDOSE
     Route: 048
     Dates: start: 20140213, end: 20140227
  2. OLANZAPINE [Concomitant]

REACTIONS (8)
  - Ventricular tachycardia [Recovered/Resolved with Sequelae]
  - Acute hepatic failure [Recovered/Resolved with Sequelae]
  - Renal failure acute [Recovered/Resolved with Sequelae]
  - Convulsion [Recovered/Resolved with Sequelae]
  - Toxicity to various agents [Unknown]
  - Intentional overdose [Unknown]
  - Dyspnoea [Unknown]
  - Acidosis [Unknown]
